FAERS Safety Report 18162254 (Version 1)
Quarter: 2020Q3

REPORT INFORMATION
  Report Type: Spontaneous
  Country: ID (occurrence: ID)
  Receive Date: 20200818
  Receipt Date: 20200818
  Transmission Date: 20201103
  Serious: Yes (Hospitalization)
  Sender: FDA-Public Use
  Company Number: ID-BAYER-2020-154364

PATIENT
  Age: 32 Year
  Sex: Female

DRUGS (3)
  1. CETIRIZINE [Suspect]
     Active Substance: CETIRIZINE HYDROCHLORIDE
     Indication: FOOD ALLERGY
     Dosage: 10 MG, QD
     Route: 048
  2. METHYLPREDNISOLONE. [Concomitant]
     Active Substance: METHYLPREDNISOLONE
     Indication: FOOD ALLERGY
     Dosage: 4 MG, BID
     Route: 048
  3. LORATADINE. [Suspect]
     Active Substance: LORATADINE
     Indication: FOOD ALLERGY
     Dosage: 10 MG, QD
     Route: 048

REACTIONS (5)
  - Skin lesion [Recovered/Resolved with Sequelae]
  - Rash papular [Recovered/Resolved with Sequelae]
  - Chest discomfort [Recovering/Resolving]
  - Lichenoid keratosis [Recovering/Resolving]
  - Pruritus [None]
